FAERS Safety Report 23513645 (Version 1)
Quarter: 2024Q1

REPORT INFORMATION
  Report Type: Spontaneous
  Country: US (occurrence: US)
  Receive Date: 20240212
  Receipt Date: 20240212
  Transmission Date: 20240410
  Serious: Yes (Other)
  Sender: FDA-Public Use
  Company Number: US-ABBVIE-5628330

PATIENT
  Sex: Female

DRUGS (2)
  1. ALPHAGAN P [Suspect]
     Active Substance: BRIMONIDINE TARTRATE
     Indication: Intraocular pressure test abnormal
     Dosage: FORM STRENGTH: 1.5MG/ML
     Route: 047
     Dates: start: 2011
  2. ALPHAGAN P [Suspect]
     Active Substance: BRIMONIDINE TARTRATE
     Indication: Glaucoma

REACTIONS (5)
  - Cardiac pacemaker insertion [Unknown]
  - Renal injury [Unknown]
  - Arthritis [Unknown]
  - Cardiac disorder [Unknown]
  - Skin irritation [Unknown]

NARRATIVE: CASE EVENT DATE: 20200101
